FAERS Safety Report 25671016 (Version 1)
Quarter: 2025Q3

REPORT INFORMATION
  Report Type: Spontaneous
  Country: US (occurrence: US)
  Receive Date: 20250812
  Receipt Date: 20250812
  Transmission Date: 20251020
  Serious: Yes (Hospitalization)
  Sender: DAIICHI
  Company Number: US-DAIICHI SANKYO, INC.-DS-2025-157776-USAA

PATIENT
  Sex: Female

DRUGS (1)
  1. VANFLYTA [Suspect]
     Active Substance: QUIZARTINIB DIHYDROCHLORIDE
     Indication: Acute myeloid leukaemia
     Route: 048

REACTIONS (3)
  - Infection [Unknown]
  - Orthostatic hypotension [Unknown]
  - Nausea [Unknown]
